FAERS Safety Report 16473791 (Version 1)
Quarter: 2019Q2

REPORT INFORMATION
  Report Type: Spontaneous
  Country: US (occurrence: US)
  Receive Date: 20190515
  Receipt Date: 20190515
  Transmission Date: 20190711
  Serious: Yes (Hospitalization)
  Sender: FDA-Public Use
  Company Number: None

PATIENT
  Age: 32 Year
  Sex: Female

DRUGS (1)
  1. GLATIRAMER  20MG PFS INJ  (30/BOX) [Suspect]
     Active Substance: GLATIRAMER
     Dates: start: 20180328

REACTIONS (1)
  - Neck surgery [None]

NARRATIVE: CASE EVENT DATE: 20190328
